FAERS Safety Report 15239844 (Version 1)
Quarter: 2018Q4

REPORT INFORMATION
  Report Type: Spontaneous
  Country: DE (occurrence: DE)
  Receive Date: 20180803
  Receipt Date: 20180803
  Transmission Date: 20190204
  Serious: Yes (Other)
  Sender: FDA-Public Use
  Company Number: DE-MYLANLABS-2018M1057930

PATIENT
  Sex: Male

DRUGS (1)
  1. PAROXEDURA [Suspect]
     Active Substance: PAROXETINE HYDROCHLORIDE
     Indication: PRODUCT USED FOR UNKNOWN INDICATION
     Dosage: UNK

REACTIONS (7)
  - Choking [Recovering/Resolving]
  - Dyspnoea [Recovering/Resolving]
  - Corrosive oropharyngeal injury [Unknown]
  - Product solubility abnormal [Unknown]
  - Foreign body in respiratory tract [Unknown]
  - Fear of death [Unknown]
  - Panic attack [Unknown]

NARRATIVE: CASE EVENT DATE: 20180723
